FAERS Safety Report 14345596 (Version 5)
Quarter: 2018Q1

REPORT INFORMATION
  Report Type: Spontaneous
  Country: BR (occurrence: BR)
  Receive Date: 20180103
  Receipt Date: 20180221
  Transmission Date: 20180509
  Serious: Yes (Other)
  Sender: FDA-Public Use
  Company Number: PHHY2017BR187561

PATIENT
  Sex: Male
  Weight: 50 kg

DRUGS (5)
  1. TRILEPTAL [Suspect]
     Active Substance: OXCARBAZEPINE
     Dosage: 1550 MG, (900 MG IN THE MORNING AND 650 MG AT NIGHT) QD
     Route: 048
     Dates: start: 20130105
  2. OXCARBAZEPINE. [Suspect]
     Active Substance: OXCARBAZEPINE
     Indication: PRODUCT USED FOR UNKNOWN INDICATION
     Dosage: UNK
     Route: 065
  3. TRILEPTAL [Suspect]
     Active Substance: OXCARBAZEPINE
     Indication: EPILEPSY
     Dosage: 1650 MG, QD (900 MG IN THE MORNING AND 750 MG AT NIGHT), QD (CONCENTRATION 600 MG)
     Route: 048
  4. TRILEPTAL [Suspect]
     Active Substance: OXCARBAZEPINE
     Dosage: 1650 MG (900 MG IN THE MORNING AND 750 MG AT NIGHT), QD
     Route: 048
     Dates: start: 20100105
  5. RIVOTRIL [Concomitant]
     Active Substance: CLONAZEPAM
     Indication: EPILEPSY
     Dosage: 15 DRP, QD (AT NIGHT)
     Route: 048

REACTIONS (7)
  - Nausea [Recovered/Resolved]
  - Weight decreased [Recovered/Resolved]
  - Vomiting [Recovered/Resolved]
  - Anticonvulsant drug level decreased [Recovered/Resolved]
  - Gastrointestinal infection [Recovered/Resolved]
  - Seizure [Recovered/Resolved]
  - Abdominal discomfort [Recovered/Resolved]

NARRATIVE: CASE EVENT DATE: 2014
